FAERS Safety Report 14090568 (Version 1)
Quarter: 2017Q4

REPORT INFORMATION
  Report Type: Spontaneous
  Country: US (occurrence: US)
  Receive Date: 20171015
  Receipt Date: 20171015
  Transmission Date: 20180321
  Serious: Yes (Hospitalization, Other)
  Sender: FDA-Public Use
  Company Number: US-ALLERGAN-1758450US

PATIENT
  Age: 42 Year
  Sex: Female

DRUGS (4)
  1. FEMCON FE [Suspect]
     Active Substance: ETHINYL ESTRADIOL\NORETHINDRONE ACETATE
     Indication: ENDOMETRIOSIS
  2. LO/OVRAL [Suspect]
     Active Substance: ETHINYL ESTRADIOL\NORGESTREL
     Indication: UTERINE LEIOMYOMA
     Dosage: UNK UNK, QD
     Route: 048
     Dates: start: 201301, end: 201603
  3. LO/OVRAL [Suspect]
     Active Substance: ETHINYL ESTRADIOL\NORGESTREL
     Indication: ENDOMETRIOSIS
  4. FEMCON FE [Suspect]
     Active Substance: ETHINYL ESTRADIOL\NORETHINDRONE ACETATE
     Indication: UTERINE LEIOMYOMA
     Dosage: UNK
     Route: 048
     Dates: start: 201301, end: 201603

REACTIONS (3)
  - Pneumothorax [Unknown]
  - Cough [Recovered/Resolved]
  - Dyspnoea [Recovered/Resolved]

NARRATIVE: CASE EVENT DATE: 201310
